FAERS Safety Report 10389050 (Version 3)
Quarter: 2014Q4

REPORT INFORMATION
  Report Type: Spontaneous
  Country: US (occurrence: US)
  Receive Date: 20140816
  Receipt Date: 20141007
  Transmission Date: 20150528
  Serious: Yes (Disabling, Other)
  Sender: FDA-Public Use
  Company Number: US-009507513-1408USA007888

PATIENT
  Age: 13 Year
  Sex: Male
  Weight: 54.1 kg

DRUGS (6)
  1. SINGULAIR [Suspect]
     Active Substance: MONTELUKAST SODIUM
     Indication: RHINITIS
     Dosage: 1 TABLET DAILY
     Route: 048
     Dates: start: 201203, end: 201206
  2. CETIRIZINE HYDROCHLORIDE. [Suspect]
     Active Substance: CETIRIZINE HYDROCHLORIDE
     Indication: SEASONAL ALLERGY
     Dosage: 10 MG, QD
     Route: 048
     Dates: start: 2012, end: 20140716
  3. SINGULAIR [Suspect]
     Active Substance: MONTELUKAST SODIUM
     Dosage: 1 TABLET DAILY
     Route: 048
     Dates: start: 201403, end: 20140626
  4. ZYRTEC [Concomitant]
     Active Substance: CETIRIZINE HYDROCHLORIDE
     Indication: SEASONAL ALLERGY
     Dosage: 1 TABLET DAILY
     Route: 048
     Dates: start: 2007, end: 2012
  5. SINGULAIR [Suspect]
     Active Substance: MONTELUKAST SODIUM
     Indication: SEASONAL ALLERGY
     Dosage: 10 MG/ONCE DAILY
     Route: 048
     Dates: start: 201103, end: 201106
  6. SINGULAIR [Suspect]
     Active Substance: MONTELUKAST SODIUM
     Dosage: 1 TABLET DAILY
     Route: 048
     Dates: start: 201303, end: 201306

REACTIONS (14)
  - Generalised tonic-clonic seizure [Unknown]
  - Hallucination, auditory [Recovered/Resolved]
  - Anxiety [Unknown]
  - Psychotic disorder [Recovered/Resolved]
  - Sleep terror [Recovered/Resolved]
  - Constipation [Recovered/Resolved]
  - Abdominal distension [Unknown]
  - Panic attack [Unknown]
  - Overdose [Unknown]
  - Visual impairment [Recovered/Resolved]
  - Hallucination, visual [Recovered/Resolved]
  - Abnormal behaviour [Unknown]
  - Migraine with aura [Unknown]
  - Incorrect dose administered [Unknown]

NARRATIVE: CASE EVENT DATE: 2011
